FAERS Safety Report 6062167-1 (Version None)
Quarter: 2009Q1

REPORT INFORMATION
  Report Type: 
  Country: None (occurrence: None)
  Receive Date: 20090202
  Receipt Date: 20090202
  Transmission Date: 20090719
  Serious: Yes (Other)
  Sender: FDA-Public Use
  Company Number: None

PATIENT
  Sex: Female
  Weight: 58.9676 kg

DRUGS (1)
  1. WARFARIN SODIUM [Suspect]
     Indication: BLOOD DISORDER
     Dosage: 1.5 QD DAILY PO
     Route: 048
     Dates: start: 20080917, end: 20090115

REACTIONS (1)
  - INTERNATIONAL NORMALISED RATIO DECREASED [None]
